FAERS Safety Report 11162297 (Version 3)
Quarter: 2015Q2

REPORT INFORMATION
  Report Type: Report from Study
  Country: US (occurrence: None)
  Receive Date: 20150602
  Receipt Date: 20150630
  Transmission Date: 20150821
  Serious: Yes (Death, Hospitalization, Other)
  Sender: FDA-Public Use
  Company Number: 2015AP009618

PATIENT
  Age: 78 Year
  Sex: Female
  Weight: 52 kg

DRUGS (13)
  1. ALLOPURINOL. [Concomitant]
     Active Substance: ALLOPURINOL
  2. ALPRAZOLAM. [Concomitant]
     Active Substance: ALPRAZOLAM
  3. DIPHENHYDRAMINE [Concomitant]
     Active Substance: DIPHENHYDRAMINE
  4. NAPROXEN (NAPROXEN) [Concomitant]
     Active Substance: NAPROXEN
  5. VITAMIN E [Concomitant]
     Active Substance: .ALPHA.-TOCOPHEROL
  6. LEVOTHYROXINE [Concomitant]
     Active Substance: LEVOTHYROXINE
  7. CARVEDILOL. [Concomitant]
     Active Substance: CARVEDILOL
  8. FUROSEMIDE. [Concomitant]
     Active Substance: FUROSEMIDE
  9. PYRIDOXINE (PYRIDOXINE) [Concomitant]
  10. NORCO (HYDROCODONE BITARTRATE, PARACETAMOL) [Concomitant]
  11. FERRIPROX [Suspect]
     Active Substance: DEFERIPRONE
     Indication: IRON OVERLOAD
     Route: 048
     Dates: start: 20140815, end: 20150518
  12. AMLODIPINE [Concomitant]
     Active Substance: AMLODIPINE BESYLATE
  13. CALCIUM + VITAMIN D (CALCIUM, COLECALCIFEROL) [Concomitant]

REACTIONS (4)
  - Platelet count decreased [None]
  - Haemoglobin decreased [None]
  - Neutropenia [None]
  - Abscess [None]

NARRATIVE: CASE EVENT DATE: 20150511
